FAERS Safety Report 20091150 (Version 2)
Quarter: 2021Q4

REPORT INFORMATION
  Report Type: Spontaneous
  Country: US (occurrence: None)
  Receive Date: 20211119
  Receipt Date: 20211230
  Transmission Date: 20220303
  Serious: Yes (Other)
  Sender: FDA-Public Use
  Company Number: 2021A806921

PATIENT
  Age: 844 Month
  Sex: Male
  Weight: 106.6 kg

DRUGS (1)
  1. BYDUREON BCISE [Suspect]
     Active Substance: EXENATIDE
     Indication: Diabetes mellitus
     Route: 058

REACTIONS (5)
  - Prostate cancer [Recovered/Resolved]
  - Gallbladder disorder [Recovered/Resolved]
  - Escherichia infection [Recovered/Resolved]
  - Incorrect dose administered by device [Unknown]
  - Drug delivery system malfunction [Unknown]

NARRATIVE: CASE EVENT DATE: 20211001
